FAERS Safety Report 11075190 (Version 5)
Quarter: 2015Q3

REPORT INFORMATION
  Report Type: Report from Study
  Country: US (occurrence: US)
  Receive Date: 20150429
  Receipt Date: 20150811
  Transmission Date: 20151125
  Serious: Yes (Other)
  Sender: FDA-Public Use
  Company Number: US-BAYER-2015-165748

PATIENT
  Age: 67 Year
  Sex: Female

DRUGS (4)
  1. STIVARGA [Interacting]
     Active Substance: REGORAFENIB
     Indication: COLON CANCER
     Dosage: 80 MG, (2 TABLETS DAILY 7DAYS ON AND 7 DAYS OFF FOR EACH 28 DAY CYCLE)
     Route: 048
     Dates: start: 20150101
  2. STIVARGA [Interacting]
     Active Substance: REGORAFENIB
     Indication: COLON CANCER
     Dosage: DAILY DOSE 80 MG 7 DAYS ON AND 7 DAYS OFF FOR EACH 28 DAY CYCLE
     Route: 048
     Dates: start: 20150501
  3. CANAGLIFLOZIN [Concomitant]
     Active Substance: CANAGLIFLOZIN
  4. STIVARGA [Suspect]
     Active Substance: REGORAFENIB
     Indication: COLON CANCER
     Dosage: 40 MG, BID
     Route: 048
     Dates: start: 20140620

REACTIONS (8)
  - Gait disturbance [None]
  - Blister [None]
  - Malaise [None]
  - Palmar-plantar erythrodysaesthesia syndrome [Not Recovered/Not Resolved]
  - Drug interaction [None]
  - Therapeutic product ineffective [None]
  - Therapy cessation [None]
  - Erythema [Not Recovered/Not Resolved]

NARRATIVE: CASE EVENT DATE: 20150421
